FAERS Safety Report 10265358 (Version 1)
Quarter: 2014Q2

REPORT INFORMATION
  Report Type: Spontaneous
  Country: US (occurrence: US)
  Receive Date: 20140627
  Receipt Date: 20140627
  Transmission Date: 20141212
  Serious: No
  Sender: FDA-Public Use
  Company Number: US-TEVA-489925USA

PATIENT
  Sex: Female
  Weight: 56.75 kg

DRUGS (3)
  1. NUVIGIL [Suspect]
     Indication: DEPRESSED LEVEL OF CONSCIOUSNESS
     Dosage: 50 MG IN MORNING/50 MG IN EVENING
  2. SYNTHROID [Concomitant]
     Indication: HYPOTHYROIDISM
  3. TYLENOL [Concomitant]
     Indication: PAIN

REACTIONS (1)
  - Somnolence [Not Recovered/Not Resolved]
